FAERS Safety Report 8561199-9 (Version None)
Quarter: 2012Q3

REPORT INFORMATION
  Report Type: 
  Country: None (occurrence: None)
  Receive Date: 20120802
  Receipt Date: 20120724
  Transmission Date: 20120928
  Serious: Yes (Other)
  Sender: FDA-Public Use
  Company Number: US-ASTRAZENECA-2011SE77049

PATIENT
  Age: 77 Year
  Sex: Female

DRUGS (3)
  1. 17 TO 20 MEDICATION [Concomitant]
  2. PULMICORT FLEXHALER [Suspect]
     Route: 055
  3. NEXIUM [Suspect]
     Route: 048

REACTIONS (13)
  - ASTHMA [None]
  - PNEUMONIA BACTERIAL [None]
  - DRUG DOSE OMISSION [None]
  - DISABILITY [None]
  - GASTROOESOPHAGEAL REFLUX DISEASE [None]
  - SUICIDAL IDEATION [None]
  - OSTEOARTHRITIS [None]
  - GENERAL PHYSICAL CONDITION ABNORMAL [None]
  - GASTRIC DISORDER [None]
  - MALAISE [None]
  - PAIN [None]
  - GAIT DISTURBANCE [None]
  - INTERVERTEBRAL DISC PROTRUSION [None]
